FAERS Safety Report 9839857 (Version 1)
Quarter: 2014Q1

REPORT INFORMATION
  Report Type: Spontaneous
  Country: AU (occurrence: AU)
  Receive Date: 20140124
  Receipt Date: 20140124
  Transmission Date: 20141002
  Serious: Yes (Other)
  Sender: FDA-Public Use
  Company Number: PHHY2014AU007552

PATIENT
  Age: 57 Year
  Sex: Female

DRUGS (1)
  1. CLOZAPINE [Suspect]

REACTIONS (3)
  - Dyspnoea [Unknown]
  - Blood pressure decreased [Unknown]
  - Sinus tachycardia [Unknown]
